APPROVED DRUG PRODUCT: TACROLIMUS
Active Ingredient: TACROLIMUS
Strength: EQ 5MG BASE/ML
Dosage Form/Route: INJECTABLE;INJECTION
Application: A217108 | Product #001 | TE Code: AP
Applicant: NEXUS PHARMACEUTICALS LLC
Approved: Feb 12, 2025 | RLD: No | RS: No | Type: RX